FAERS Safety Report 7608842-6 (Version None)
Quarter: 2011Q3

REPORT INFORMATION
  Report Type: 
  Country: None (occurrence: None)
  Receive Date: 20110713
  Receipt Date: 20110713
  Transmission Date: 20111222
  Serious: Yes (Hospitalization)
  Sender: FDA-Public Use
  Company Number: None

PATIENT
  Age: 59 Year
  Sex: Female
  Weight: 56.246 kg

DRUGS (6)
  1. CLEOCIN T [Concomitant]
  2. ERLOTINIB HYDROCHLORIDE [Suspect]
     Indication: NON-SMALL CELL LUNG CANCER
     Dosage: 150 MG QD
     Dates: start: 20110223, end: 20110407
  3. COMPAZINE [Concomitant]
  4. HYDROCODONE BITARTRATE [Concomitant]
  5. METOPROLOL TARTRATE [Concomitant]
  6. HYDROCHLOROQUINE [Suspect]
     Indication: NON-SMALL CELL LUNG CANCER
     Dosage: 1000 MG QD
     Dates: start: 20110223, end: 20110330

REACTIONS (9)
  - LEUKOCYTOSIS [None]
  - NEOPLASM PROGRESSION [None]
  - BLOOD CULTURE POSITIVE [None]
  - FATIGUE [None]
  - VOMITING [None]
  - NAUSEA [None]
  - HYPOPHAGIA [None]
  - PNEUMONIA [None]
  - NON-SMALL CELL LUNG CANCER [None]
